FAERS Safety Report 18208699 (Version 1)
Quarter: 2020Q3

REPORT INFORMATION
  Report Type: Spontaneous
  Country: US (occurrence: US)
  Receive Date: 20200828
  Receipt Date: 20200828
  Transmission Date: 20201103
  Serious: Yes (Death, Other)
  Sender: FDA-Public Use
  Company Number: US-PURDUE-USA-2020-0163488

PATIENT
  Age: 41 Year
  Sex: Female

DRUGS (5)
  1. OXYCODONE HCL CR TABLETS (SIMILAR TO NDA 22?272) [Suspect]
     Active Substance: OXYCODONE HYDROCHLORIDE
     Indication: PRODUCT USED FOR UNKNOWN INDICATION
     Dosage: 5 MG, UNK
     Route: 048
  2. VICODIN [Suspect]
     Active Substance: ACETAMINOPHEN\HYDROCODONE BITARTRATE
     Indication: BACK PAIN
     Dosage: 5/325 MG, TWICE DAILY
     Route: 048
  3. CLONAZEPAM. [Concomitant]
     Active Substance: CLONAZEPAM
     Indication: PRODUCT USED FOR UNKNOWN INDICATION
     Dosage: UNK MG, UNK
     Route: 048
  4. ACETAMINOPHEN + COD. PHOSP. [Concomitant]
     Active Substance: ACETAMINOPHEN\CODEINE PHOSPHATE
     Indication: PRODUCT USED FOR UNKNOWN INDICATION
     Dosage: UNK MG, UNK
     Route: 048
  5. HYDROCODONE BITARTRATE AND ACETAMINOPHEN [Suspect]
     Active Substance: ACETAMINOPHEN\HYDROCODONE BITARTRATE
     Indication: PRODUCT USED FOR UNKNOWN INDICATION
     Dosage: UNK MG, UNK
     Route: 048

REACTIONS (16)
  - Drug dependence [Unknown]
  - Muscle strain [Unknown]
  - Blood pressure increased [Unknown]
  - Vaginal haemorrhage [Unknown]
  - Generalised anxiety disorder [Unknown]
  - Obesity [Unknown]
  - Toxicity to various agents [Fatal]
  - Exposure during pregnancy [Unknown]
  - Drug interaction [Unknown]
  - Depression [Unknown]
  - Overdose [Fatal]
  - Abortion induced [Unknown]
  - Back pain [Unknown]
  - Upper respiratory tract infection [Unknown]
  - Intervertebral disc degeneration [None]
  - Osteoarthritis [Unknown]

NARRATIVE: CASE EVENT DATE: 20170908
